FAERS Safety Report 21226013 (Version 1)
Quarter: 2022Q3

REPORT INFORMATION
  Report Type: Spontaneous
  Country: US (occurrence: US)
  Receive Date: 20220818
  Receipt Date: 20220818
  Transmission Date: 20221027
  Serious: Yes (Other)
  Sender: FDA-Public Use
  Company Number: US-BRISTOL-MYERS SQUIBB COMPANY-2022-089673

PATIENT
  Age: 65 Year
  Sex: Male

DRUGS (8)
  1. REVLIMID [Suspect]
     Active Substance: LENALIDOMIDE
     Indication: Plasma cell myeloma
     Dosage: TAKE 1 CAPSULE BY MOUTH  DAILY ON DAYS 1-28 OF A 28 DAY CYCLE
     Route: 048
     Dates: start: 20210326
  2. ACYCLOVIR [Concomitant]
     Active Substance: ACYCLOVIR
     Indication: Product used for unknown indication
     Dosage: TAB 400MG
     Route: 065
  3. AMITRIPTYLINE HYDROCHLORIDE [Concomitant]
     Active Substance: AMITRIPTYLINE HYDROCHLORIDE
     Indication: Product used for unknown indication
     Route: 065
  4. AMITRIPTYLINE HYDROCHLORIDE [Concomitant]
     Active Substance: AMITRIPTYLINE HYDROCHLORIDE
     Route: 065
  5. ATRON [ATORVASTATIN CALCIUM] [Concomitant]
     Indication: Product used for unknown indication
     Route: 065
  6. DEXAVET [DEXAMETHASONE] [Concomitant]
     Indication: Product used for unknown indication
     Route: 065
  7. GABAPENTIN PALLIRX [Concomitant]
     Indication: Product used for unknown indication
     Dosage: CAP 100MG
     Route: 065
  8. HYPERNIL [LISINOPRIL] [Concomitant]
     Indication: Product used for unknown indication
     Route: 065

REACTIONS (1)
  - Neuropathy peripheral [Unknown]
